FAERS Safety Report 17551239 (Version 1)
Quarter: 2020Q1

REPORT INFORMATION
  Report Type: Report from Study
  Country: US (occurrence: US)
  Receive Date: 20200317
  Receipt Date: 20200317
  Transmission Date: 20200409
  Serious: Yes (Hospitalization)
  Sender: FDA-Public Use
  Company Number: US-PFIZER INC-2020105106

PATIENT
  Age: 9 Year
  Sex: Male
  Weight: 64.2 kg

DRUGS (5)
  1. INCB018424 [Suspect]
     Active Substance: RUXOLITINIB
     Indication: ACUTE LYMPHOCYTIC LEUKAEMIA
     Dosage: 75 MG, TWICE DAILY X 14 DAYS  EVERY 4 WEEKS (FORMULATION: TABLET)
     Route: 048
     Dates: start: 20181120, end: 20200210
  2. VINCRISTINE SULFATE. [Suspect]
     Active Substance: VINCRISTINE SULFATE
     Indication: ACUTE LYMPHOCYTIC LEUKAEMIA
     Dosage: 2 MG, EVERY 4 WEEKS
     Route: 042
     Dates: start: 20181120, end: 20200131
  3. MERCAPTOPURINE. [Suspect]
     Active Substance: MERCAPTOPURINE
     Indication: ACUTE LYMPHOCYTIC LEUKAEMIA
     Dosage: 600 MG, WEEKLY (FORMULATION: TABLET)
     Route: 048
     Dates: start: 20181120, end: 20200206
  4. PREDNISONE. [Suspect]
     Active Substance: PREDNISONE
     Indication: ACUTE LYMPHOCYTIC LEUKAEMIA
     Dosage: 30 MG, TWICE DAILY X 5 DAYS EVERY 4 WEEKS (FORMULATION: TABLET)
     Route: 048
     Dates: start: 20181204, end: 20200204
  5. METHOTREXATE. [Suspect]
     Active Substance: METHOTREXATE
     Indication: ACUTE LYMPHOCYTIC LEUKAEMIA
     Dosage: 30 MG, WEEKLY (FORMULATION: TABLET)
     Route: 048
     Dates: start: 20190913, end: 20200207

REACTIONS (1)
  - Febrile neutropenia [Unknown]

NARRATIVE: CASE EVENT DATE: 20200211
